FAERS Safety Report 18527624 (Version 1)
Quarter: 2020Q4

REPORT INFORMATION
  Report Type: Spontaneous
  Country: US (occurrence: US)
  Receive Date: 20201120
  Receipt Date: 20201120
  Transmission Date: 20210114
  Serious: No
  Sender: FDA-Public Use
  Company Number: US-JNJFOC-20201128046

PATIENT
  Sex: Male

DRUGS (1)
  1. TYLENOL 8HR [Suspect]
     Active Substance: ACETAMINOPHEN
     Indication: PAIN
     Dosage: 1 X IN A.M. 2 DURING DAY 1 X P.M.
     Route: 048

REACTIONS (1)
  - Incorrect dose administered [Unknown]
